FAERS Safety Report 5272195-1 (Version None)
Quarter: 2007Q1

REPORT INFORMATION
  Report Type: 
  Country: None (occurrence: None)
  Receive Date: 20070320
  Receipt Date: 20070320
  Transmission Date: 20070707
  Serious: Yes (Disabling, Other)
  Sender: FDA-Public Use
  Company Number: None

PATIENT
  Sex: Male

DRUGS (1)
  1. AVODART [Suspect]

REACTIONS (4)
  - BREAST PAIN [None]
  - CONSTIPATION [None]
  - GYNAECOMASTIA [None]
  - LIBIDO DECREASED [None]
